FAERS Safety Report 6373379-1 (Version None)
Quarter: 2009Q3

REPORT INFORMATION
  Report Type: 
  Country: None (occurrence: None)
  Receive Date: 20090924
  Receipt Date: 20090311
  Transmission Date: 20100115
  Serious: No
  Sender: FDA-Public Use
  Company Number: US-ASTRAZENECA-2009UW06475

PATIENT
  Sex: Female
  Weight: 81.6 kg

DRUGS (7)
  1. SEROQUEL [Suspect]
     Route: 048
  2. EFFEXOR [Concomitant]
  3. LAMICTAL [Concomitant]
  4. VALIUM [Concomitant]
  5. SPIRIVA [Concomitant]
  6. NEURONTIN [Concomitant]
  7. LORTAB [Concomitant]

REACTIONS (1)
  - THROAT TIGHTNESS [None]
